FAERS Safety Report 8343875-6 (Version None)
Quarter: 2012Q2

REPORT INFORMATION
  Report Type: 
  Country: None (occurrence: None)
  Receive Date: 20120508
  Receipt Date: 20120427
  Transmission Date: 20120825
  Serious: Yes (Other)
  Sender: FDA-Public Use
  Company Number: US-JNJFOC-20120500636

PATIENT
  Sex: Female
  Weight: 63.5 kg

DRUGS (3)
  1. METHOTREXATE [Concomitant]
     Indication: RHEUMATOID ARTHRITIS
     Route: 048
  2. PREDNISONE TAB [Concomitant]
     Indication: RHEUMATOID ARTHRITIS
     Route: 048
  3. REMICADE [Suspect]
     Indication: RHEUMATOID ARTHRITIS
     Dosage: 3 VIALS
     Route: 042

REACTIONS (4)
  - HYPERTENSION [None]
  - URINARY TRACT INFECTION [None]
  - HERPES ZOSTER [None]
  - BLOOD IRON DECREASED [None]
